FAERS Safety Report 13207572 (Version 1)
Quarter: 2017Q1

REPORT INFORMATION
  Report Type: Spontaneous
  Country: US (occurrence: US)
  Receive Date: 20170209
  Receipt Date: 20170209
  Transmission Date: 20170428
  Serious: Yes (Hospitalization)
  Sender: FDA-Public Use
  Company Number: None

PATIENT
  Age: 18 Year
  Sex: Female
  Weight: 118.2 kg

DRUGS (6)
  1. DAUNORUBICIN [Suspect]
     Active Substance: DAUNORUBICIN
     Dates: end: 20170117
  2. PREDNISONE. [Suspect]
     Active Substance: PREDNISONE
     Dates: end: 20170119
  3. ONCASPAR [Concomitant]
     Active Substance: PEGASPARGASE
     Dosage: TOTAL DOSE ADMINISTERED - 5700 UNIT
     Dates: end: 20170104
  4. VINCRISTINE SULFATE. [Suspect]
     Active Substance: VINCRISTINE SULFATE
     Dates: end: 20170117
  5. CYTARABINE. [Suspect]
     Active Substance: CYTARABINE
     Dates: end: 20170112
  6. METHOTREXATE. [Suspect]
     Active Substance: METHOTREXATE
     Dates: end: 20170109

REACTIONS (5)
  - Dyspnoea [None]
  - Vomiting [None]
  - Pyrexia [None]
  - Chest discomfort [None]
  - Escherichia bacteraemia [None]

NARRATIVE: CASE EVENT DATE: 20170120
